FAERS Safety Report 16636565 (Version 2)
Quarter: 2019Q3

REPORT INFORMATION
  Report Type: Spontaneous
  Country: US (occurrence: US)
  Receive Date: 20190726
  Receipt Date: 20190923
  Transmission Date: 20191004
  Serious: Yes (Other)
  Sender: FDA-Public Use
  Company Number: US-BAYER-2019-138981

PATIENT
  Age: 44 Year
  Sex: Male

DRUGS (2)
  1. KOGENATE FS [Suspect]
     Active Substance: ANTIHEMOPHILIC FACTOR, HUMAN RECOMBINANT
     Indication: FACTOR VIII DEFICIENCY
     Dosage: 3385 U, PRN
     Route: 042
     Dates: start: 20170428
  2. KOGENATE FS [Suspect]
     Active Substance: ANTIHEMOPHILIC FACTOR, HUMAN RECOMBINANT
     Indication: FACTOR VIII DEFICIENCY
     Dosage: 3750 U, QD PRN
     Route: 042
     Dates: start: 20190530

REACTIONS (7)
  - Haemorrhage [Recovered/Resolved]
  - Contusion [Not Recovered/Not Resolved]
  - Contusion [Recovered/Resolved]
  - Haemorrhage [None]
  - Haemarthrosis [Recovered/Resolved]
  - Joint injury [None]
  - Haemarthrosis [None]

NARRATIVE: CASE EVENT DATE: 201908
